FAERS Safety Report 4919191-9 (Version None)
Quarter: 2006Q1

REPORT INFORMATION
  Report Type: 
  Country: None (occurrence: None)
  Receive Date: 20060222
  Receipt Date: 20051212
  Transmission Date: 20060701
  Serious: Yes (Hospitalization)
  Sender: FDA-Public Use
  Company Number: US-GILEAD-2005-0009019

PATIENT
  Sex: Male
  Weight: 68 kg

DRUGS (21)
  1. EMTRICITABINE/TENOFOVIR DF PLACEBO [Suspect]
     Indication: HIV INFECTION
     Dosage: 200 MG/300 MG
     Route: 048
     Dates: start: 20051025, end: 20051125
  2. ABACAVIR/LAMIVUDINE [Suspect]
     Indication: HIV INFECTION
     Route: 048
     Dates: start: 20051025, end: 20051125
  3. REYATAZ [Suspect]
     Indication: HIV INFECTION
     Route: 048
     Dates: start: 20051025, end: 20051125
  4. RITONAVIR [Suspect]
     Indication: HIV INFECTION
     Route: 048
     Dates: start: 20051025, end: 20051125
  5. LUNESTA [Concomitant]
     Dates: start: 20051119, end: 20051120
  6. MOTRIN [Concomitant]
     Route: 048
     Dates: start: 20051103
  7. ATIVAN [Concomitant]
     Dates: start: 20051011, end: 20051025
  8. ZITHROMAX [Concomitant]
     Route: 048
     Dates: start: 20050727
  9. BACTRIM DS [Concomitant]
     Route: 048
     Dates: start: 20051126
  10. BACTRIM DS [Concomitant]
     Route: 048
     Dates: start: 20050812
  11. BACTRIM DS [Concomitant]
     Route: 048
     Dates: start: 20050727, end: 20050811
  12. FLUCONAZOLE [Concomitant]
     Route: 048
     Dates: start: 20051003
  13. FLUCONAZOLE [Concomitant]
     Dates: start: 20050816, end: 20050830
  14. FAMVIR [Concomitant]
     Dates: start: 20050721
  15. ATARAX [Concomitant]
     Dates: start: 20050912
  16. NIZORAL [Concomitant]
     Route: 061
     Dates: start: 20050912
  17. VITAMIN B-12 [Concomitant]
     Dates: start: 19880101
  18. MULTI-VITAMIN [Concomitant]
     Route: 048
     Dates: start: 20050727
  19. ASCORBIC ACID [Concomitant]
     Route: 048
     Dates: start: 20050727
  20. BACTROBAN [Concomitant]
     Route: 061
     Dates: start: 20050912
  21. CULTIVATE [Concomitant]
     Route: 061
     Dates: start: 20050912

REACTIONS (2)
  - MYCOBACTERIUM AVIUM COMPLEX INFECTION [None]
  - SINUS TACHYCARDIA [None]
